FAERS Safety Report 5276828-5 (Version None)
Quarter: 2007Q1

REPORT INFORMATION
  Report Type: 
  Country: None (occurrence: None)
  Receive Date: 20070327
  Receipt Date: 20070316
  Transmission Date: 20070707
  Serious: Yes (Hospitalization, Other)
  Sender: FDA-Public Use
  Company Number: BR-JNJFOC-20070107394

PATIENT
  Sex: Male
  Weight: 65 kg

DRUGS (12)
  1. TMC125 [Suspect]
     Indication: HIV INFECTION
     Route: 048
  2. TMC114 [Suspect]
     Route: 048
  3. TMC114 [Suspect]
     Indication: HIV INFECTION
     Route: 048
  4. RITONAVIR [Suspect]
     Indication: HIV INFECTION
     Route: 048
  5. GABAPENTIN [Suspect]
     Indication: DRUG USE FOR UNKNOWN INDICATION
     Route: 065
  6. GLICAZIDE [Suspect]
     Indication: DIABETES MELLITUS
     Route: 048
  7. COMBIVIR [Concomitant]
     Indication: HIV INFECTION
     Route: 048
  8. VIREAD [Concomitant]
     Indication: HIV INFECTION
     Route: 048
  9. FUZEON [Concomitant]
     Indication: HIV INFECTION
     Route: 058
  10. COTRIMOXAZOLE [Concomitant]
     Route: 048
  11. COTRIMOXAZOLE [Concomitant]
     Indication: PROPHYLAXIS
     Route: 048
  12. FLUCONAZOLE [Concomitant]
     Indication: PROPHYLAXIS
     Route: 048

REACTIONS (2)
  - ALANINE AMINOTRANSFERASE INCREASED [None]
  - PYREXIA [None]
